FAERS Safety Report 18980599 (Version 1)
Quarter: 2021Q1

REPORT INFORMATION
  Report Type: Spontaneous
  Country: US (occurrence: US)
  Receive Date: 20210308
  Receipt Date: 20210308
  Transmission Date: 20210420
  Serious: Yes (Other)
  Sender: FDA-Public Use
  Company Number: US-GLAXOSMITHKLINE-US2021GSK046818

PATIENT
  Sex: Male

DRUGS (4)
  1. ZANTAC [Suspect]
     Active Substance: RANITIDINE HYDROCHLORIDE
     Indication: GASTROOESOPHAGEAL REFLUX DISEASE
     Dosage: UNKNOWN AT THIS TIME OVER THE COUNTER, OCCASIONAL
     Route: 065
     Dates: start: 2001, end: 2003
  2. ZANTAC [Suspect]
     Active Substance: RANITIDINE HYDROCHLORIDE
     Indication: GASTROOESOPHAGEAL REFLUX DISEASE
     Dosage: UNKNOWN AT THIS TIME OVER THE COUNTER, OCCASIONAL
     Route: 065
     Dates: start: 2001, end: 2003
  3. RANITIDINE. [Suspect]
     Active Substance: RANITIDINE
     Indication: GASTROOESOPHAGEAL REFLUX DISEASE
     Dosage: UNK, DAILY FOR MANY YEARS BUT TOOK A BREAK FOR A FEW YEARS AND STARTED TAKING IT DAILY AGAIN
     Route: 065
     Dates: start: 2003, end: 2016
  4. RANITIDINE. [Suspect]
     Active Substance: RANITIDINE
     Indication: GASTROOESOPHAGEAL REFLUX DISEASE
     Dosage: UNK, DAILY FOR MANY YEARS BUT TOOK A BREAK FOR A FEW YEARS AND STARTED TAKING IT DAILY AGAIN
     Route: 065
     Dates: start: 2003, end: 2016

REACTIONS (1)
  - Prostate cancer [Unknown]
